FAERS Safety Report 25868186 (Version 2)
Quarter: 2025Q4

REPORT INFORMATION
  Report Type: Spontaneous
  Country: EU (occurrence: EU)
  Receive Date: 20251001
  Receipt Date: 20251016
  Transmission Date: 20260118
  Serious: Yes (Other)
  Sender: Kenvue
  Company Number: EU-SANOFI-02653441

PATIENT

DRUGS (6)
  1. ACETAMINOPHEN [Suspect]
     Active Substance: ACETAMINOPHEN
     Indication: Product used for unknown indication
     Dosage: UNK
     Route: 065
  2. LEMTRADA [Suspect]
     Active Substance: ALEMTUZUMAB
     Indication: Product used for unknown indication
     Dosage: FIRST CYCLE
     Route: 065
     Dates: start: 201805, end: 20180518
  3. LEMTRADA [Suspect]
     Active Substance: ALEMTUZUMAB
     Dosage: SECOND CYCLE
     Route: 065
     Dates: start: 201905, end: 201905
  4. COVID-19 VACCINE NOS [Suspect]
     Active Substance: COVID-19 VACCINE
     Indication: COVID-19 immunisation
     Dosage: 1 ST DOSE
     Route: 065
     Dates: start: 20210701
  5. COVID-19 VACCINE NOS [Suspect]
     Active Substance: COVID-19 VACCINE
     Dosage: 2 ND DOSE
     Route: 065
     Dates: start: 20210727
  6. Daosin [Concomitant]
     Indication: Product used for unknown indication
     Dosage: UNK
     Route: 065

REACTIONS (19)
  - Anaphylactic shock [Unknown]
  - Erythema [Unknown]
  - Swelling of eyelid [Unknown]
  - Lip swelling [Unknown]
  - Swollen tongue [Unknown]
  - Dysphagia [Unknown]
  - Dyspnoea [Unknown]
  - Inflammation [Unknown]
  - Dizziness [Recovered/Resolved]
  - COVID-19 [Unknown]
  - Ageusia [Unknown]
  - Anosmia [Unknown]
  - Headache [Unknown]
  - Facial discomfort [Unknown]
  - Herpes zoster [Unknown]
  - Drug hypersensitivity [Not Recovered/Not Resolved]
  - Pruritus [Unknown]
  - Fatigue [Recovered/Resolved]
  - Incorrect drug administration rate [Unknown]

NARRATIVE: CASE EVENT DATE: 20180501
